FAERS Safety Report 12745277 (Version 1)
Quarter: 2016Q3

REPORT INFORMATION
  Report Type: Report from Study
  Country: IL (occurrence: IL)
  Receive Date: 20160915
  Receipt Date: 20160915
  Transmission Date: 20161109
  Serious: Yes (Other)
  Sender: FDA-Public Use
  Company Number: IL-SUN PHARMACEUTICAL INDUSTRIES LTD-2016R1-123961

PATIENT
  Age: 58 Year
  Sex: Male

DRUGS (6)
  1. DOXORUBICIN [Suspect]
     Active Substance: DOXORUBICIN
     Indication: DIFFUSE LARGE B-CELL LYMPHOMA STAGE IV
     Dosage: 6 CYCLES
     Route: 065
  2. PREDNISONE. [Suspect]
     Active Substance: PREDNISONE
     Indication: DIFFUSE LARGE B-CELL LYMPHOMA STAGE IV
     Dosage: 6 CYCLES
     Route: 065
  3. RITUXIMAB [Suspect]
     Active Substance: RITUXIMAB
     Dosage: 6 CYCLE
     Route: 065
  4. CYCLOPHOSPHAMIDE. [Suspect]
     Active Substance: CYCLOPHOSPHAMIDE
     Indication: DIFFUSE LARGE B-CELL LYMPHOMA STAGE IV
     Dosage: 6 CYCLES
     Route: 065
  5. ONCOVIN [Suspect]
     Active Substance: VINCRISTINE SULFATE
     Indication: DIFFUSE LARGE B-CELL LYMPHOMA STAGE IV
     Dosage: 6 CYCLES
     Route: 065
  6. RITUXIMAB [Suspect]
     Active Substance: RITUXIMAB
     Indication: DIFFUSE LARGE B-CELL LYMPHOMA STAGE IV
     Dosage: 3 MONTH; FOR A PERIOD OF 15 MONTH
     Route: 065

REACTIONS (2)
  - Hypogammaglobulinaemia [Not Recovered/Not Resolved]
  - Respiratory tract infection [Recovered/Resolved]
